FAERS Safety Report 6452983-6 (Version None)
Quarter: 2009Q4

REPORT INFORMATION
  Report Type: 
  Country: None (occurrence: None)
  Receive Date: 20091124
  Receipt Date: 20091118
  Transmission Date: 20100525
  Serious: Yes (Death, Hospitalization)
  Sender: FDA-Public Use
  Company Number: FR-ELI_LILLY_AND_COMPANY-FR200911004996

PATIENT
  Sex: Male

DRUGS (6)
  1. GEMZAR [Suspect]
     Indication: HEPATIC NEOPLASM MALIGNANT
     Dosage: 2015 MG, UNKNOWN
     Route: 042
     Dates: start: 20090720, end: 20090101
  2. GEMZAR [Suspect]
     Dosage: 2015 MG, UNKNOWN
     Route: 042
     Dates: start: 20090803, end: 20090803
  3. OXALIPLATIN [Concomitant]
     Indication: HEPATIC NEOPLASM MALIGNANT
     Dates: start: 20090702, end: 20090803
  4. FLUOROURACIL [Concomitant]
     Dosage: UNK, UNKNOWN
     Route: 048
     Dates: start: 20090101
  5. XELODA [Concomitant]
     Dosage: 1000 MG/M2, UNKNOWN
     Route: 042
     Dates: start: 20090101
  6. XELODA [Concomitant]
     Dosage: 500 MG, 2/D
     Route: 048
     Dates: start: 20090101

REACTIONS (8)
  - ASCITES [None]
  - ASTHENIA [None]
  - DEATH [None]
  - DYSPNOEA [None]
  - FATIGUE [None]
  - GENERAL PHYSICAL HEALTH DETERIORATION [None]
  - OFF LABEL USE [None]
  - PLEURAL EFFUSION [None]
